FAERS Safety Report 7562454-1 (Version None)
Quarter: 2011Q2

REPORT INFORMATION
  Report Type: 
  Country: None (occurrence: None)
  Receive Date: 20110621
  Receipt Date: 20110621
  Transmission Date: 20111010
  Serious: No
  Sender: FDA-Public Use
  Company Number: None

PATIENT
  Age: 56 Year
  Sex: Female

DRUGS (1)
  1. XELODA [Suspect]
     Indication: BREAST CANCER STAGE IV
     Dosage: 1000MG BID PO
     Route: 048

REACTIONS (3)
  - DIZZINESS [None]
  - DYSGRAPHIA [None]
  - TOOTH CROWDING [None]
